FAERS Safety Report 8375306-4 (Version None)
Quarter: 2012Q2

REPORT INFORMATION
  Report Type: 
  Country: None (occurrence: None)
  Receive Date: 20120522
  Receipt Date: 20120517
  Transmission Date: 20120825
  Serious: No
  Sender: FDA-Public Use
  Company Number: US-BIOGENIDEC-2012BI012074

PATIENT
  Sex: Female

DRUGS (2)
  1. AVONEX [Concomitant]
     Route: 030
  2. TYSABRI [Suspect]
     Indication: MULTIPLE SCLEROSIS
     Route: 042
     Dates: start: 20111222

REACTIONS (4)
  - INFLUENZA LIKE ILLNESS [None]
  - COGNITIVE DISORDER [None]
  - CONTUSION [None]
  - ABDOMINAL PAIN LOWER [None]
